FAERS Safety Report 19964004 (Version 1)
Quarter: 2021Q4

REPORT INFORMATION
  Report Type: Spontaneous
  Country: DE (occurrence: DE)
  Receive Date: 20211018
  Receipt Date: 20211018
  Transmission Date: 20220303
  Serious: Yes (Hospitalization)
  Sender: FDA-Public Use
  Company Number: DE-ADRED-06548-01

PATIENT
  Age: 47 Year
  Sex: Male

DRUGS (6)
  1. CARVEDILOL [Suspect]
     Active Substance: CARVEDILOL
     Indication: Product used for unknown indication
     Dosage: 25 MG, 1-0-1-0, TABLETTEN
     Route: 048
  2. CANDESARTAN [Suspect]
     Active Substance: CANDESARTAN
     Indication: Product used for unknown indication
     Dosage: 8 MG, 1-0-1-0, TABLETTEN
     Route: 048
  3. GLUCOSAMINE W/METHYLSULFONYLMETHANE [Concomitant]
     Dosage: 5 MILLIGRAM, 1-0-0-0, TABLETTEN
     Route: 048
  4. IRON [Concomitant]
     Active Substance: IRON
     Dosage: 100 MILLIGRAM, 1-0-0-0, KAPSELN
     Route: 048
  5. PANTOPRAZOLE [Concomitant]
     Active Substance: PANTOPRAZOLE
     Dosage: 20 MILLIGRAM, 1-0-1-0, TABLETTEN
     Route: 048
  6. METFORMIN [Concomitant]
     Active Substance: METFORMIN HYDROCHLORIDE
     Dosage: 1000 MILLIGRAM, 1-0-1-0, TABLETTEN
     Route: 048

REACTIONS (2)
  - Asthenia [Unknown]
  - Hypotension [Unknown]

NARRATIVE: CASE EVENT DATE: 20210410
